FAERS Safety Report 12803382 (Version 1)
Quarter: 2016Q4

REPORT INFORMATION
  Report Type: Spontaneous
  Country: IN (occurrence: IN)
  Receive Date: 20161003
  Receipt Date: 20161003
  Transmission Date: 20170207
  Serious: Yes (Other)
  Sender: FDA-Public Use
  Company Number: IN-FRESENIUS KABI-FK201607264

PATIENT
  Age: 15 Year
  Sex: Male

DRUGS (3)
  1. OXCARBAZEPINE. [Suspect]
     Active Substance: OXCARBAZEPINE
     Indication: TEMPORAL LOBE EPILEPSY
     Route: 065
  2. VALPROATE [Suspect]
     Active Substance: VALPROIC ACID
     Indication: TEMPORAL LOBE EPILEPSY
     Route: 065
  3. CLOBAZAM [Suspect]
     Active Substance: CLOBAZAM
     Indication: TEMPORAL LOBE EPILEPSY
     Route: 065

REACTIONS (2)
  - Mania [Recovering/Resolving]
  - Major depression [Recovering/Resolving]
